FAERS Safety Report 24183813 (Version 2)
Quarter: 2025Q1

REPORT INFORMATION
  Report Type: Spontaneous
  Country: US (occurrence: US)
  Receive Date: 20240807
  Receipt Date: 20250328
  Transmission Date: 20250409
  Serious: Yes (Death, Other)
  Sender: AMGEN
  Company Number: US-HORIZON THERAPEUTICS-HZN-2023-001439

PATIENT

DRUGS (2)
  1. PREDNISONE [Suspect]
     Active Substance: PREDNISONE
     Indication: Hepatitis alcoholic
     Dosage: 40 MILLIGRAM, QD (FOR 30 DAYS)
     Route: 048
  2. PREDNISONE [Suspect]
     Active Substance: PREDNISONE
     Indication: Acute kidney injury

REACTIONS (4)
  - Death [Fatal]
  - Acute kidney injury [Fatal]
  - Renal tubular necrosis [Unknown]
  - Off label use [Unknown]
